FAERS Safety Report 20218714 (Version 1)
Quarter: 2021Q4

REPORT INFORMATION
  Report Type: Spontaneous
  Country: US (occurrence: None)
  Receive Date: 20211222
  Receipt Date: 20211222
  Transmission Date: 20220303
  Serious: Yes (Hospitalization)
  Sender: FDA-Public Use
  Company Number: None

PATIENT
  Sex: Female

DRUGS (17)
  1. AMBRISENTAN [Suspect]
     Active Substance: AMBRISENTAN
     Indication: Pulmonary arterial hypertension
     Dosage: FREQUENCY : DAILY;?
     Route: 048
  2. CEFDINIR [Concomitant]
     Active Substance: CEFDINIR
  3. CIPROFLOXACIN [Concomitant]
     Active Substance: CIPROFLOXACIN
  4. FLUTICASONE [Concomitant]
     Active Substance: FLUTICASONE
  5. HC VALERATE [Concomitant]
  6. IPRATROPIUM [Concomitant]
  7. MULTI-VIT/FL CHW [Concomitant]
  8. NASONEX [Concomitant]
     Active Substance: MOMETASONE FUROATE
  9. PERMETHRIN [Concomitant]
     Active Substance: PERMETHRIN
  10. POLY-VIT/FL [Concomitant]
  11. RANITIDINE [Concomitant]
     Active Substance: RANITIDINE
  12. REMODULIN [Concomitant]
     Active Substance: TREPROSTINIL
  13. SINGULAIR [Concomitant]
     Active Substance: MONTELUKAST SODIUM
  14. TADALAFIL [Concomitant]
     Active Substance: TADALAFIL
  15. TAMIFLU [Concomitant]
     Active Substance: OSELTAMIVIR PHOSPHATE
  16. TRIAMCINOLONE ACETONIDE [Concomitant]
     Active Substance: TRIAMCINOLONE ACETONIDE
  17. XOPENEX [Concomitant]
     Active Substance: LEVALBUTEROL HYDROCHLORIDE

REACTIONS (1)
  - Ovarian cystectomy [None]
